FAERS Safety Report 9834428 (Version 3)
Quarter: 2014Q4

REPORT INFORMATION
  Report Type: Report from Study
  Country: US (occurrence: US)
  Receive Date: 20140122
  Receipt Date: 20141124
  Transmission Date: 20150529
  Serious: Yes (Life-Threatening, Hospitalization)
  Sender: FDA-Public Use
  Company Number: PHHY2013US031734

PATIENT
  Age: 50 Year
  Sex: Male
  Weight: 62.72 kg

DRUGS (25)
  1. INDAPAMIDE. [Concomitant]
     Active Substance: INDAPAMIDE
  2. LORAZEPAM A [Concomitant]
  3. PANCRELIPASE. [Concomitant]
     Active Substance: PANCRELIPASE
  4. METOPROLOL [Concomitant]
     Active Substance: METOPROLOL
  5. NITROGLYCERIN. [Concomitant]
     Active Substance: NITROGLYCERIN
     Route: 065
  6. BEVACIZUMAB [Suspect]
     Active Substance: BEVACIZUMAB
     Indication: NEUROENDOCRINE TUMOUR
     Dosage: 10 MG, UNK
     Route: 042
     Dates: start: 20120409, end: 20120423
  7. INSULIN ASPART [Concomitant]
     Active Substance: INSULIN ASPART
  8. ALLOPURINOL. [Concomitant]
     Active Substance: ALLOPURINOL
     Route: 065
  9. ASPIRIN. [Concomitant]
     Active Substance: ASPIRIN
  10. ENALAPRIL [Concomitant]
     Active Substance: ENALAPRIL
  11. NIFEDIAC CC [Concomitant]
     Active Substance: NIFEDIPINE
  12. CLOPIDOGREL [Concomitant]
     Active Substance: CLOPIDOGREL BISULFATE
  13. PROTEASE [Concomitant]
     Active Substance: PROTEASE
     Route: 065
  14. AFINITOR [Suspect]
     Active Substance: EVEROLIMUS
     Indication: NEUROENDOCRINE TUMOUR
     Dosage: 10 MG, QD
     Route: 048
     Dates: start: 20120409, end: 20131118
  15. PLAVIX [Concomitant]
     Active Substance: CLOPIDOGREL BISULFATE
  16. WELCHOL [Concomitant]
     Active Substance: COLESEVELAM HYDROCHLORIDE
  17. ATORVASTATIN [Concomitant]
     Active Substance: ATORVASTATIN
  18. FUROSEMIDE. [Concomitant]
     Active Substance: FUROSEMIDE
  19. LIPASE [Concomitant]
     Active Substance: LIPASE
  20. OCTREOTIDE [Suspect]
     Active Substance: OCTREOTIDE
     Dates: end: 20140922
  21. AMYLASE [Concomitant]
     Active Substance: AMYLASE
     Route: 065
  22. AFINITOR [Suspect]
     Active Substance: EVEROLIMUS
     Dates: end: 20140924
  23. NOVOLOG [Concomitant]
     Active Substance: INSULIN ASPART
  24. NIFEDIPINE. [Concomitant]
     Active Substance: NIFEDIPINE
  25. OCTREOTIDE [Suspect]
     Active Substance: OCTREOTIDE
     Dosage: 20 MG
     Route: 030
     Dates: start: 20120409, end: 20131118

REACTIONS (30)
  - Respiratory failure [Unknown]
  - Aspartate aminotransferase increased [Recovered/Resolved]
  - Acidosis [Unknown]
  - Sepsis [Unknown]
  - Hypotension [Unknown]
  - Blood chloride decreased [Unknown]
  - Anaemia [Unknown]
  - Hypoalbuminaemia [Unknown]
  - Acute kidney injury [Unknown]
  - Diarrhoea [Unknown]
  - Blood bilirubin increased [Not Recovered/Not Resolved]
  - Confusional state [Unknown]
  - Angina pectoris [Not Recovered/Not Resolved]
  - Troponin I increased [Recovered/Resolved]
  - Hypocalcaemia [Not Recovered/Not Resolved]
  - Dyspnoea [Not Recovered/Not Resolved]
  - Hyperglycaemia [Not Recovered/Not Resolved]
  - Weight decreased [Not Recovered/Not Resolved]
  - Proteinuria [Unknown]
  - Acute coronary syndrome [Recovered/Resolved]
  - Blood creatinine increased [Not Recovered/Not Resolved]
  - Nausea [Recovered/Resolved]
  - Alanine aminotransferase increased [Recovered/Resolved]
  - Myocardial infarction [Not Recovered/Not Resolved]
  - Hyponatraemia [Not Recovered/Not Resolved]
  - Chest discomfort [Unknown]
  - Fatigue [Not Recovered/Not Resolved]
  - Blood alkaline phosphatase increased [Unknown]
  - Hyperhidrosis [Not Recovered/Not Resolved]
  - Renal impairment [Unknown]

NARRATIVE: CASE EVENT DATE: 20130226
